FAERS Safety Report 4655109-4 (Version None)
Quarter: 2005Q2

REPORT INFORMATION
  Report Type: 
  Country: None (occurrence: None)
  Receive Date: 20050506
  Receipt Date: 20040506
  Transmission Date: 20051028
  Serious: Yes (Death)
  Sender: FDA-Public Use
  Company Number: FR-JNJFOC-20040501493

PATIENT
  Sex: Female

DRUGS (2)
  1. PROPULSID [Suspect]
     Indication: OESOPHAGEAL ANASTOMOSIS
     Route: 049
     Dates: start: 20030616, end: 20030621
  2. PROPULSID [Suspect]
     Indication: VOMITING
     Route: 049
     Dates: start: 20030616, end: 20030621

REACTIONS (1)
  - GASTRIC CANCER [None]
